FAERS Safety Report 9601911 (Version 1)
Quarter: 2013Q4

REPORT INFORMATION
  Report Type: Spontaneous
  Country: FR (occurrence: None)
  Receive Date: 20131002
  Receipt Date: 20131002
  Transmission Date: 20140711
  Serious: Yes (Hospitalization)
  Sender: FDA-Public Use
  Company Number: 2013P1019528

PATIENT
  Age: 28 Year
  Sex: Male

DRUGS (3)
  1. VALPROIC ACID [Suspect]
     Indication: GRAND MAL CONVULSION
     Route: 048
  2. MIDAZOLAM [Suspect]
     Indication: SEDATION
  3. SUFENTANIL [Concomitant]

REACTIONS (6)
  - Loss of consciousness [None]
  - Extradural haematoma [None]
  - Status epilepticus [None]
  - Hyperammonaemic encephalopathy [None]
  - Electroencephalogram abnormal [None]
  - Overdose [None]
